FAERS Safety Report 23653281 (Version 3)
Quarter: 2024Q3

REPORT INFORMATION
  Report Type: Spontaneous
  Country: US (occurrence: US)
  Receive Date: 20240320
  Receipt Date: 20240827
  Transmission Date: 20241016
  Serious: Yes (Other)
  Sender: PFIZER
  Company Number: US-PFIZER INC-202400068032

PATIENT
  Age: 5 Year
  Sex: Female

DRUGS (2)
  1. OXBRYTA [Suspect]
     Active Substance: VOXELOTOR
     Dosage: 600 MG, 1X/DAY (2 TABLET ONCE DAILY)
     Route: 048
     Dates: start: 202312
  2. OXBRYTA [Suspect]
     Active Substance: VOXELOTOR
     Dosage: 600 MG, 1X/DAY (2 TABLET ONCE DAILY)
     Route: 048
     Dates: start: 2024

REACTIONS (4)
  - Childhood asthma [Not Recovered/Not Resolved]
  - Product dose omission issue [Unknown]
  - Headache [Unknown]
  - Abdominal pain upper [Unknown]

NARRATIVE: CASE EVENT DATE: 20240301
